FAERS Safety Report 8258205-8 (Version None)
Quarter: 2012Q2

REPORT INFORMATION
  Report Type: 
  Country: None (occurrence: None)
  Receive Date: 20120404
  Receipt Date: 20120330
  Transmission Date: 20120825
  Serious: Yes (Hospitalization)
  Sender: FDA-Public Use
  Company Number: PHFR2012GB001659

PATIENT
  Sex: Male

DRUGS (6)
  1. VALPROATE SODIUM [Concomitant]
     Dosage: 800 MG, UNK
     Route: 048
  2. CLOZARIL [Suspect]
     Indication: SCHIZOPHRENIA
     Dosage: 125 MG, UNK
     Route: 048
     Dates: start: 20111020
  3. CITALOPRAM HYDROBROMIDE [Concomitant]
     Dosage: 30 MG, UNK
     Route: 048
  4. CLOBAZAM [Concomitant]
     Dosage: 10 MG, PRN
  5. LEVETIRACETAM [Concomitant]
     Dosage: 200 MG, BID
     Route: 048
  6. OMEPRAZOLE [Concomitant]
     Dosage: 80 MG, UNK
     Route: 048

REACTIONS (1)
  - LOWER LIMB FRACTURE [None]
